FAERS Safety Report 5768811-8 (Version None)
Quarter: 2008Q2

REPORT INFORMATION
  Report Type: 
  Country: None (occurrence: None)
  Receive Date: 20080612
  Receipt Date: 20080312
  Transmission Date: 20081010
  Serious: No
  Sender: FDA-Public Use
  Company Number: US-ABBOTT-08P-163-0442426-00

PATIENT
  Sex: Female
  Weight: 63.106 kg

DRUGS (6)
  1. HUMIRA [Suspect]
     Indication: RHEUMATOID ARTHRITIS
     Route: 058
     Dates: start: 20061001
  2. METHOTREXATE [Concomitant]
     Indication: RHEUMATOID ARTHRITIS
     Route: 050
     Dates: start: 20061001
  3. BUPIVACAINE [Concomitant]
     Indication: BACK PAIN
     Route: 050
     Dates: start: 20071024
  4. BUPIVACAINE [Concomitant]
     Indication: NECK PAIN
  5. METFORMIN HCL [Concomitant]
     Indication: DIABETES MELLITUS
     Route: 048
     Dates: start: 20070101
  6. REPAGLINIDE [Concomitant]
     Indication: DIABETES MELLITUS
     Route: 042
     Dates: start: 20070901

REACTIONS (3)
  - BURNING SENSATION [None]
  - CREPITATIONS [None]
  - OEDEMA PERIPHERAL [None]
